FAERS Safety Report 5948798-5 (Version None)
Quarter: 2008Q4

REPORT INFORMATION
  Report Type: 
  Country: None (occurrence: None)
  Receive Date: 20081021
  Receipt Date: 20080313
  Transmission Date: 20090506
  Serious: Yes (Other)
  Sender: FDA-Public Use
  Company Number: HQWYE196116JUL04

PATIENT
  Age: 50 Year
  Sex: Female
  Weight: 113.5 kg

DRUGS (5)
  1. PREMARIN [Suspect]
     Indication: OESTROGEN REPLACEMENT THERAPY
     Dosage: 1.25 MG
     Dates: start: 19980218, end: 20020401
  2. PREMPRO [Suspect]
  3. ZIAC [Concomitant]
  4. VIOXX [Concomitant]
  5. AMITRIPTYLINE HYDROCHLORIDE [Concomitant]

REACTIONS (1)
  - BREAST CANCER [None]
